FAERS Safety Report 25620625 (Version 1)
Quarter: 2025Q3

REPORT INFORMATION
  Report Type: Spontaneous
  Country: EU (occurrence: EU)
  Receive Date: 20250730
  Receipt Date: 20250730
  Transmission Date: 20251021
  Serious: Yes (Hospitalization, Other)
  Sender: JOHNSON AND JOHNSON
  Company Number: EU-JNJFOC-20250736666

PATIENT
  Age: 85 Year
  Sex: Female

DRUGS (1)
  1. RIVAROXABAN [Suspect]
     Active Substance: RIVAROXABAN
     Indication: Atrial fibrillation
     Route: 048

REACTIONS (6)
  - Gastrointestinal haemorrhage [Unknown]
  - Left ventricular failure [Unknown]
  - Pleural effusion [Unknown]
  - Blood loss anaemia [Unknown]
  - Asthenia [Unknown]
  - Chest discomfort [Unknown]
